FAERS Safety Report 7281599-7 (Version None)
Quarter: 2011Q1

REPORT INFORMATION
  Report Type: 
  Country: None (occurrence: None)
  Receive Date: 20110208
  Receipt Date: 20110201
  Transmission Date: 20110831
  Serious: Yes (Other)
  Sender: FDA-Public Use
  Company Number: PHEH2009US01515

PATIENT
  Sex: Female

DRUGS (1)
  1. LESCOL [Suspect]
     Dosage: 40 MG, QD
     Route: 048

REACTIONS (2)
  - FEELING ABNORMAL [None]
  - CARDIAC FAILURE CONGESTIVE [None]
